FAERS Safety Report 7178510-6 (Version None)
Quarter: 2010Q4

REPORT INFORMATION
  Report Type: 
  Country: None (occurrence: None)
  Receive Date: 20101220
  Receipt Date: 20101213
  Transmission Date: 20110411
  Serious: Yes (Other)
  Sender: FDA-Public Use
  Company Number: US-B.I. PHARMACEUTICALS,INC./RIDGEFIELD-2010-DE-06917GD

PATIENT
  Sex: Female

DRUGS (2)
  1. BISACODYL [Suspect]
     Indication: BOWEL PREPARATION
  2. HALFLYTELY [Suspect]
     Indication: BOWEL PREPARATION

REACTIONS (1)
  - COLITIS ISCHAEMIC [None]
